FAERS Safety Report 7522041-8 (Version None)
Quarter: 2011Q2

REPORT INFORMATION
  Report Type: 
  Country: None (occurrence: None)
  Receive Date: 20110603
  Receipt Date: 20110505
  Transmission Date: 20111010
  Serious: Yes (Other)
  Sender: FDA-Public Use
  Company Number: US-BAYER-2011-040073

PATIENT
  Age: 53 Year
  Sex: Male
  Weight: 79 kg

DRUGS (5)
  1. NEXIUM [Concomitant]
  2. ALEVE (CAPLET) [Suspect]
     Indication: ANALGESIC THERAPY
     Dosage: 220 MG, QD
     Dates: start: 20100101
  3. DIOVAN [Concomitant]
  4. LIPITOR [Concomitant]
  5. AVODART [Concomitant]

REACTIONS (1)
  - HAEMATOCHEZIA [None]
